FAERS Safety Report 9491292 (Version 1)
Quarter: 2013Q1

REPORT INFORMATION
  Report Type: Not Available
  Country: US (occurrence: US)
  Receive Date: 20120619
  Receipt Date: 20120619
  Transmission Date: 20140127
  Serious: No
  Sender: FDA-Public Use
  Company Number: US-LUNDBECK-DKLU1078732

PATIENT
  Sex: Female

DRUGS (2)
  1. SABRIL     (TABLET) [Suspect]
     Indication: CONVULSION
     Route: 048
  2. SABRIL     (TABLET) [Suspect]

REACTIONS (2)
  - Motor dysfunction [Unknown]
  - Somnolence [Unknown]
